FAERS Safety Report 18509096 (Version 1)
Quarter: 2020Q4

REPORT INFORMATION
  Report Type: Spontaneous
  Country: GB (occurrence: GB)
  Receive Date: 20201117
  Receipt Date: 20201117
  Transmission Date: 20210114
  Serious: No
  Sender: FDA-Public Use
  Company Number: GB-GW PHARMA-202011GBGW03857

PATIENT

DRUGS (13)
  1. EPIDIOLEX [Suspect]
     Active Substance: CANNABIDIOL
     Indication: SEVERE MYOCLONIC EPILEPSY OF INFANCY
     Dosage: 2.5 MG/KG/DAY, 160 MILLIGRAM, QD EVERY WEEK TO 20 MG/KG/DAY
     Route: 048
  2. VITAMIN D [VITAMIN D NOS] [Concomitant]
     Active Substance: VITAMIN D NOS
     Indication: SUPPLEMENTATION THERAPY
     Dosage: UNK
     Route: 065
  3. ETHOSUXIMIDE. [Suspect]
     Active Substance: ETHOSUXIMIDE
     Indication: EPILEPSY
     Dosage: UNK
     Route: 065
  4. CLOBAZAM. [Suspect]
     Active Substance: CLOBAZAM
     Dosage: DOSE REDUCED DUE TO HYPERSOMNOLENCE, ELEVATED LEVELS AND WORSENING BEHAVIOUR, UNK
     Route: 065
  5. EPIDIOLEX [Suspect]
     Active Substance: CANNABIDIOL
     Dosage: 10 MG/KG/DAY, 640 MILLIGRAM, QD
     Route: 048
  6. CLOBAZAM. [Suspect]
     Active Substance: CLOBAZAM
     Indication: EPILEPSY
     Dosage: 20 MILLIGRAM, BID
     Route: 065
  7. EPIDIOLEX [Suspect]
     Active Substance: CANNABIDIOL
     Dosage: 20 MG/KG/DAY, 1280 MILLIGRAM, QD
     Route: 048
  8. CLOBAZAM. [Suspect]
     Active Substance: CLOBAZAM
     Dosage: 10 MILLIGRAM, BID (REDUCED DUE TO EVENTS)
     Route: 065
  9. EPILIM [Suspect]
     Active Substance: VALPROATE SODIUM
     Dosage: 1600 MILLIGRAM, QD (REDUCED BY 200 MG TO 700MG AND 900 MG)
     Route: 048
  10. STIRIPENTOL [Suspect]
     Active Substance: STIRIPENTOL
     Indication: EPILEPSY
     Dosage: 1500 MILLIGRAM, BID
     Route: 065
     Dates: start: 2005
  11. EPIDIOLEX [Suspect]
     Active Substance: CANNABIDIOL
     Dosage: 15 MG/KG/DAY, 960 MILLIGRAM, QD
     Route: 048
  12. EPILIM [Suspect]
     Active Substance: VALPROATE SODIUM
     Indication: EPILEPSY
     Dosage: 900 MILLIGRAM, BID
     Route: 048
  13. EPIDIOLEX [Suspect]
     Active Substance: CANNABIDIOL
     Dosage: 5 MG/KG/DAY, 320 MILLIGRAM, QD (WEEK 2)
     Route: 048

REACTIONS (8)
  - Seizure [Recovering/Resolving]
  - Transaminases increased [Unknown]
  - Refusal of treatment by patient [Unknown]
  - Generalised tonic-clonic seizure [Recovering/Resolving]
  - Condition aggravated [Unknown]
  - Therapeutic response unexpected [Unknown]
  - Decreased appetite [Unknown]
  - Abnormal behaviour [Unknown]
